FAERS Safety Report 12731107 (Version 1)
Quarter: 2016Q3

REPORT INFORMATION
  Report Type: Report from Study
  Country: US (occurrence: US)
  Receive Date: 20160911
  Receipt Date: 20160911
  Transmission Date: 20161109
  Serious: No
  Sender: FDA-Public Use
  Company Number: US-AMGEN-USASL2016114366

PATIENT
  Age: 56 Year
  Sex: Female

DRUGS (1)
  1. ENBREL [Suspect]
     Active Substance: ETANERCEPT
     Indication: PRODUCT USED FOR UNKNOWN INDICATION
     Dosage: UNK
     Route: 065

REACTIONS (7)
  - Temporomandibular joint syndrome [Unknown]
  - Headache [Unknown]
  - Rash macular [Not Recovered/Not Resolved]
  - Pain in jaw [Unknown]
  - Feeling hot [Unknown]
  - Muscle tightness [Unknown]
  - Pruritus [Unknown]
